FAERS Safety Report 4893231-8 (Version None)
Quarter: 2006Q1

REPORT INFORMATION
  Report Type: 
  Country: None (occurrence: None)
  Receive Date: 20060124
  Receipt Date: 20060111
  Transmission Date: 20060701
  Serious: Yes (Other)
  Sender: FDA-Public Use
  Company Number: 221021

PATIENT
  Age: 49 Year
  Sex: Female

DRUGS (5)
  1. RITUXAN [Suspect]
     Indication: POLYNEUROPATHY
     Dosage: 375 MG/M2
  2. STEROID (INGREDIENTS) (STEROIDS NOS) [Concomitant]
  3. ACETAMINOPHEN [Concomitant]
  4. CETIRIZINE HCL [Concomitant]
  5. SOLU-MEDROL [Concomitant]

REACTIONS (2)
  - ANAPHYLACTIC REACTION [None]
  - SERUM SICKNESS [None]
